FAERS Safety Report 14426876 (Version 5)
Quarter: 2018Q4

REPORT INFORMATION
  Report Type: Report from Study
  Country: JP (occurrence: JP)
  Receive Date: 20180123
  Receipt Date: 20181004
  Transmission Date: 20190204
  Serious: Yes (Death, Life-Threatening, Other)
  Sender: FDA-Public Use
  Company Number: JP-INCYTE CORPORATION-2018IN000394

PATIENT

DRUGS (11)
  1. JAKAVI [Suspect]
     Active Substance: RUXOLITINIB
     Indication: POLYCYTHAEMIA VERA
     Dosage: 5 MG, QD
     Route: 048
     Dates: start: 20170206, end: 20170220
  2. JAKAVI [Suspect]
     Active Substance: RUXOLITINIB
     Dosage: 5 MG, QD
     Route: 048
     Dates: start: 20170306, end: 20170326
  3. JAKAVI [Suspect]
     Active Substance: RUXOLITINIB
     Dosage: 15 MG, QD
     Route: 048
     Dates: start: 20170411, end: 20170417
  4. DAIPHEN [Concomitant]
     Active Substance: SULFAMETHOXAZOLE\TRIMETHOPRIM
     Indication: INFECTION PROPHYLAXIS
     Dosage: UNK
     Route: 048
     Dates: end: 20170625
  5. ALKERAN [Concomitant]
     Active Substance: MELPHALAN
     Indication: POLYCYTHAEMIA VERA
     Dosage: 2 MG, UNK
     Route: 048
     Dates: end: 20170327
  6. JAKAVI [Suspect]
     Active Substance: RUXOLITINIB
     Dosage: ALTERNATING DOSE OF 15 MG QD AND 10 MG QD
     Route: 048
     Dates: start: 20170418, end: 20170808
  7. JAKAVI [Suspect]
     Active Substance: RUXOLITINIB
     Dosage: 5 MG, QOD
     Route: 048
     Dates: start: 20170221, end: 20170305
  8. JAKAVI [Suspect]
     Active Substance: RUXOLITINIB
     Dosage: ALTERNATING DOSE OF 5 MG QD AND 10 MG QD
     Route: 048
     Dates: start: 20170327, end: 20170329
  9. DECADRON [Concomitant]
     Active Substance: DEXAMETHASONE
     Indication: POLYCYTHAEMIA VERA
     Dosage: 0.5 MG, UNK
     Route: 048
     Dates: end: 20170804
  10. JAKAVI [Suspect]
     Active Substance: RUXOLITINIB
     Dosage: 10 MG, QD
     Route: 048
     Dates: start: 20170330, end: 20170410
  11. HYDREA [Concomitant]
     Active Substance: HYDROXYUREA
     Indication: POLYCYTHAEMIA VERA
     Dosage: 500 MG, UNK
     Route: 048
     Dates: end: 20170212

REACTIONS (21)
  - Fall [Recovering/Resolving]
  - Bone marrow failure [Recovering/Resolving]
  - Renal impairment [Recovering/Resolving]
  - Haematoma [Unknown]
  - Hepatic function abnormal [Not Recovered/Not Resolved]
  - Spinal osteoarthritis [Recovering/Resolving]
  - Platelet count decreased [Recovering/Resolving]
  - Cardiac failure [Fatal]
  - Condition aggravated [Fatal]
  - Malaise [Unknown]
  - Dehydration [Not Recovered/Not Resolved]
  - Dyspnoea [Fatal]
  - Haemorrhage [Recovering/Resolving]
  - Polycythaemia vera [Fatal]
  - C-reactive protein increased [Unknown]
  - Internal haemorrhage [Recovering/Resolving]
  - Blood pressure decreased [Fatal]
  - Infection [Recovering/Resolving]
  - Vertigo positional [Recovering/Resolving]
  - Pulmonary alveolar haemorrhage [Not Recovered/Not Resolved]
  - Haemoglobin decreased [Recovering/Resolving]

NARRATIVE: CASE EVENT DATE: 20170220
